FAERS Safety Report 5310845-1 (Version None)
Quarter: 2007Q2

REPORT INFORMATION
  Report Type: 
  Country: None (occurrence: None)
  Receive Date: 20070428
  Receipt Date: 20070418
  Transmission Date: 20071010
  Serious: Yes (Hospitalization, Other)
  Sender: FDA-Public Use
  Company Number: PFIZER INC-2007032971

PATIENT
  Sex: Male
  Weight: 77 kg

DRUGS (6)
  1. SU-011,248 [Suspect]
     Indication: METASTATIC RENAL CELL CARCINOMA
     Route: 048
  2. ASPIRIN [Concomitant]
     Route: 048
  3. TRIMETAZIDINE [Concomitant]
     Route: 048
  4. VALSARTAN [Concomitant]
     Route: 048
  5. LACIDIPINE [Concomitant]
     Route: 048
     Dates: start: 20070312, end: 20070412
  6. TAMSULOSIN HCL [Concomitant]
     Route: 048

REACTIONS (1)
  - HAEMORRHAGE INTRACRANIAL [None]
